FAERS Safety Report 18912125 (Version 1)
Quarter: 2021Q1

REPORT INFORMATION
  Report Type: Spontaneous
  Country: FR (occurrence: FR)
  Receive Date: 20210218
  Receipt Date: 20210218
  Transmission Date: 20210420
  Serious: Yes (Other)
  Sender: FDA-Public Use
  Company Number: FR-GLAXOSMITHKLINE-FR2020EME246125

PATIENT
  Sex: Female

DRUGS (1)
  1. BENLYSTA [Suspect]
     Active Substance: BELIMUMAB
     Indication: SYSTEMIC LUPUS ERYTHEMATOSUS
     Dosage: 200 MG

REACTIONS (12)
  - Grip strength decreased [Unknown]
  - Haematoma [Unknown]
  - Insomnia [Unknown]
  - Urinary tract infection [Unknown]
  - Fatigue [Unknown]
  - Injection site haematoma [Unknown]
  - Injection site pain [Unknown]
  - Arthralgia [Not Recovered/Not Resolved]
  - Pericarditis [Unknown]
  - Systemic lupus erythematosus [Unknown]
  - Headache [Unknown]
  - Neuralgia [Unknown]
